FAERS Safety Report 7226864-4 (Version None)
Quarter: 2011Q1

REPORT INFORMATION
  Report Type: 
  Country: None (occurrence: None)
  Receive Date: 20110105
  Receipt Date: 20101229
  Transmission Date: 20110831
  Serious: Yes (Hospitalization, Other)
  Sender: FDA-Public Use
  Company Number: 2010SP005479

PATIENT
  Age: 27 Year
  Sex: Female
  Weight: 104.3273 kg

DRUGS (3)
  1. NUVARING [Suspect]
     Indication: CONTRACEPTION
     Dosage: ;QM;VAG; VAG
     Route: 067
     Dates: start: 20070407
  2. NUVARING [Suspect]
     Indication: CONTRACEPTION
     Dosage: ;QM;VAG; VAG
     Route: 067
     Dates: start: 20060101, end: 20060101
  3. DAYQUIL [Suspect]
     Indication: PRODUCT USED FOR UNKNOWN INDICATION

REACTIONS (13)
  - PULMONARY EMBOLISM [None]
  - DEEP VEIN THROMBOSIS [None]
  - SUICIDAL IDEATION [None]
  - ALCOHOL POISONING [None]
  - PULMONARY INFARCTION [None]
  - OVERDOSE [None]
  - ENDOMETRITIS [None]
  - MALAISE [None]
  - INSOMNIA [None]
  - THROMBOSIS [None]
  - HEPATITIS C [None]
  - SUICIDE ATTEMPT [None]
  - PROCEDURAL PAIN [None]
